FAERS Safety Report 5840141-5 (Version None)
Quarter: 2008Q3

REPORT INFORMATION
  Report Type: 
  Country: None (occurrence: None)
  Receive Date: 20080807
  Receipt Date: 20080807
  Transmission Date: 20090109
  Serious: No
  Sender: FDA-Public Use
  Company Number: None

PATIENT
  Age: 78 Year
  Sex: Female
  Weight: 49.8957 kg

DRUGS (1)
  1. BUMETANIDE [Suspect]
     Indication: BLOOD PRESSURE
     Dosage: 1 TABLET PER DAY
     Dates: start: 20071227

REACTIONS (3)
  - ASTHENIA [None]
  - FATIGUE [None]
  - HEART RATE IRREGULAR [None]
